FAERS Safety Report 8951389 (Version 1)
Quarter: 2012Q4

REPORT INFORMATION
  Report Type: Spontaneous
  Country: GB (occurrence: None)
  Receive Date: 20121129
  Receipt Date: 20121129
  Transmission Date: 20130627
  Serious: Yes (Other)
  Sender: FDA-Public Use
  Company Number: IMP_06086_2012

PATIENT
  Sex: Male

DRUGS (1)
  1. RAMIPRIL (RAMIPRIL) [Suspect]
     Indication: BLOOD PRESSURE
     Dosage: 20 mg (10 mg, 2 in 1 D) Unknown

REACTIONS (4)
  - Labile blood pressure [None]
  - Hypertension [None]
  - Drug ineffective [None]
  - Drug tolerance [None]
